FAERS Safety Report 25913582 (Version 3)
Quarter: 2025Q4

REPORT INFORMATION
  Report Type: Spontaneous
  Country: US (occurrence: US)
  Receive Date: 20251013
  Receipt Date: 20251114
  Transmission Date: 20260118
  Serious: No
  Sender: ASTELLAS
  Company Number: US-ASTELLAS-2025-AER-055938

PATIENT
  Age: 74 Year
  Sex: Male

DRUGS (2)
  1. PADCEV [Suspect]
     Active Substance: ENFORTUMAB VEDOTIN-EJFV
     Indication: Transitional cell carcinoma
     Dosage: POWDER FOR SOLUTION FOR INFUSION
     Route: 065
     Dates: start: 20250218
  2. PADCEV [Suspect]
     Active Substance: ENFORTUMAB VEDOTIN-EJFV
     Indication: Bladder cancer

REACTIONS (1)
  - Malaise [Unknown]
